FAERS Safety Report 4957601-1 (Version None)
Quarter: 2006Q1

REPORT INFORMATION
  Report Type: 
  Country: None (occurrence: None)
  Receive Date: 20060330
  Receipt Date: 20060322
  Transmission Date: 20060701
  Serious: Yes (Other)
  Sender: FDA-Public Use
  Company Number: PHEH2006US03882

PATIENT
  Age: 47 Year
  Sex: Male

DRUGS (1)
  1. ZELNORM [Suspect]
     Indication: ILEUS
     Dosage: UNK, QD
     Dates: start: 20050920, end: 20050926

REACTIONS (2)
  - HEADACHE [None]
  - PYREXIA [None]
